FAERS Safety Report 23021812 (Version 1)
Quarter: 2023Q4

REPORT INFORMATION
  Report Type: Spontaneous
  Country: ES (occurrence: ES)
  Receive Date: 20231003
  Receipt Date: 20231003
  Transmission Date: 20240110
  Serious: Yes (Hospitalization, Other)
  Sender: FDA-Public Use
  Company Number: ES-Accord-378272

PATIENT
  Age: 76 Year
  Sex: Male
  Weight: 67 kg

DRUGS (13)
  1. PACLITAXEL [Suspect]
     Active Substance: PACLITAXEL
     Indication: Ductal adenocarcinoma of pancreas
     Dosage: DOSE GIVEN ON DAY 1, 8 AND 15. ONCE
     Dates: start: 20230605, end: 20230605
  2. GEMCITABINE HYDROCHLORIDE [Suspect]
     Active Substance: GEMCITABINE HYDROCHLORIDE
     Indication: Ductal adenocarcinoma of pancreas
     Dosage: DOSE GIVEN ON DAY 1, 8 AND 15ONCE
     Dates: start: 20230613, end: 20230613
  3. GEMCITABINE HYDROCHLORIDE [Suspect]
     Active Substance: GEMCITABINE HYDROCHLORIDE
     Dosage: DOSE GIVEN ON DAY 1, 8 AND 15ONCE
     Dates: start: 20230718, end: 20230718
  4. GEMCITABINE HYDROCHLORIDE [Suspect]
     Active Substance: GEMCITABINE HYDROCHLORIDE
     Dosage: DOSE GIVEN ON DAY 1, 8 AND 15ONCE
     Dates: start: 20230703, end: 20230703
  5. GEMCITABINE HYDROCHLORIDE [Suspect]
     Active Substance: GEMCITABINE HYDROCHLORIDE
     Dosage: DOSE GIVEN ON DAY 1, 8 AND 15ONCE
     Dates: start: 20230814, end: 20230814
  6. GEMCITABINE HYDROCHLORIDE [Suspect]
     Active Substance: GEMCITABINE HYDROCHLORIDE
     Dosage: DOSE GIVEN ON DAY 1, 8 AND 15ONCE
     Dates: start: 20230711, end: 20230711
  7. GEMCITABINE HYDROCHLORIDE [Suspect]
     Active Substance: GEMCITABINE HYDROCHLORIDE
     Dosage: DOSE GIVEN ON DAY 1, 8 AND 15ONCE
     Dates: start: 20230605, end: 20230605
  8. DEXKETOPROFEN TROMETAMOL [Concomitant]
     Active Substance: DEXKETOPROFEN TROMETAMOL
     Indication: Abdominal pain upper
     Dosage: 1 IN 1 DAY
     Route: 048
     Dates: start: 20230703
  9. METAMIZOL [Concomitant]
     Active Substance: METAMIZOLE SODIUM
     Indication: Pyrexia
     Dosage: 6 GM  (2 GM, 3 IN 1 D)
     Dates: start: 20230823
  10. SODIUM CHLORIDE [Concomitant]
     Active Substance: SODIUM CHLORIDE
     Indication: Dehydration
     Dosage: 1500 ML (500 ML, 3 IN 1 D)
     Dates: start: 20230823
  11. MEGESTROL ACETATE [Concomitant]
     Active Substance: MEGESTROL ACETATE
     Indication: Decreased appetite
     Dosage: 160 MG , 1 IN 12 HRS
     Route: 048
     Dates: start: 20230718, end: 20230731
  12. PANCRELIPASE [Concomitant]
     Active Substance: PANCRELIPASE
     Indication: Impaired gastric emptying
     Dosage: 250000 IU, 2 IN 1 D
     Route: 048
     Dates: start: 20230605
  13. ACETAMINOPHEN [Concomitant]
     Active Substance: ACETAMINOPHEN
     Indication: Pain
     Dosage: 3 GM (1 GM, 3 IN 1 D)
     Dates: start: 20230823

REACTIONS (6)
  - Cholangitis [Recovered/Resolved]
  - Hypokalaemia [Unknown]
  - Thrombocytopenia [Unknown]
  - Neutropenia [Unknown]
  - Hyponatraemia [Unknown]
  - Off label use [Unknown]

NARRATIVE: CASE EVENT DATE: 20230823
